FAERS Safety Report 7927863-7 (Version None)
Quarter: 2011Q4

REPORT INFORMATION
  Report Type: 
  Country: None (occurrence: None)
  Receive Date: 20111118
  Receipt Date: 20111118
  Transmission Date: 20120403
  Serious: No
  Sender: FDA-Public Use
  Company Number: None

PATIENT
  Age: 46 Year
  Sex: Female
  Weight: 61.234 kg

DRUGS (3)
  1. ABILIFY [Suspect]
     Indication: ANXIETY
     Dosage: 10MG
     Route: 060
     Dates: start: 20080201, end: 20080731
  2. ABILIFY [Suspect]
     Indication: POST-TRAUMATIC STRESS DISORDER
     Dosage: 10MG
     Route: 060
     Dates: start: 20080201, end: 20080731
  3. ABILIFY [Suspect]
     Indication: BIPOLAR DISORDER
     Dosage: 10MG
     Route: 060
     Dates: start: 20080201, end: 20080731

REACTIONS (5)
  - PAIN IN JAW [None]
  - FEELING ABNORMAL [None]
  - DROOLING [None]
  - DYSKINESIA [None]
  - MUSCULOSKELETAL STIFFNESS [None]
